FAERS Safety Report 9927454 (Version 2)
Quarter: 2014Q1

REPORT INFORMATION
  Report Type: Spontaneous
  Country: GB (occurrence: GB)
  Receive Date: 20140227
  Receipt Date: 20140227
  Transmission Date: 20141002
  Serious: Yes (Hospitalization, Other)
  Sender: FDA-Public Use
  Company Number: PHFR2014GB001408

PATIENT
  Sex: Female
  Weight: 82 kg

DRUGS (8)
  1. CLOZARIL [Suspect]
     Indication: SCHIZOPHRENIA
     Dosage: 400 MG, DAILY
     Route: 048
     Dates: start: 20080615
  2. CLOZARIL [Suspect]
     Dosage: UNK
     Dates: end: 20140201
  3. HALOPERIDOL [Concomitant]
     Indication: AGITATION
     Dosage: 0.5 MG, DAILY
     Route: 048
  4. LEVETIRACETAM [Concomitant]
     Indication: CONVULSION
     Dosage: 250 MG, DAILY
     Route: 048
  5. METFORMIN [Concomitant]
     Indication: DIABETES MELLITUS
     Dosage: 850 MG, DAILY
     Route: 048
  6. ASPIRIN [Concomitant]
     Indication: BLOOD DISORDER
     Dosage: 75 MG, DAILY
     Route: 048
  7. PARACETAMOL [Concomitant]
     Indication: PAIN
     Dosage: 100 MG, DAILY
     Route: 048
  8. RAMIPRIL [Concomitant]
     Indication: BLOOD DISORDER
     Dosage: 5 G, DAILY
     Route: 048

REACTIONS (5)
  - Weight decreased [Unknown]
  - Haemoglobin decreased [Unknown]
  - Grand mal convulsion [Recovered/Resolved]
  - Convulsion [Recovered/Resolved]
  - Diabetes mellitus [Unknown]
